FAERS Safety Report 17858990 (Version 1)
Quarter: 2020Q2

REPORT INFORMATION
  Report Type: Spontaneous
  Country: US (occurrence: US)
  Receive Date: 20200603
  Receipt Date: 20200603
  Transmission Date: 20200714
  Serious: Yes (Other)
  Sender: FDA-Public Use
  Company Number: None

PATIENT
  Age: 67 Year
  Sex: Female
  Weight: 135 kg

DRUGS (22)
  1. ACETAMINOPHEN (PRN) [Concomitant]
  2. DOXYCYCLINE --INTRAVENOUS [Concomitant]
  3. INSULIN GLARGINE [Concomitant]
     Active Substance: INSULIN GLARGINE
  4. NEBIVOLOL. [Concomitant]
     Active Substance: NEBIVOLOL
  5. PROPOFOL--INTRAVENOUS DRIP [Concomitant]
  6. BUMETANIDE. [Concomitant]
     Active Substance: BUMETANIDE
  7. MULTIVITAMIN TABLET [Concomitant]
  8. ATORVASTATIN [Concomitant]
     Active Substance: ATORVASTATIN
  9. REGULAR INSULIN DRIP/SLIDING SCALE [Concomitant]
  10. ROCURONIUM [Concomitant]
     Active Substance: ROCURONIUM BROMIDE
  11. ASPIRIN. [Concomitant]
     Active Substance: ASPIRIN
  12. D50W (PRN) [Concomitant]
  13. METHYLPREDNISOLONE SODIUM SUCCINATE. [Concomitant]
     Active Substance: METHYLPREDNISOLONE SODIUM SUCCINATE
  14. ZOSYN [Concomitant]
     Active Substance: PIPERACILLIN SODIUM\TAZOBACTAM SODIUM
  15. REMDESIVIR. [Suspect]
     Active Substance: REMDESIVIR
     Indication: COVID-19
     Route: 042
     Dates: start: 20200527, end: 20200530
  16. BENZONATATE. [Concomitant]
     Active Substance: BENZONATATE
  17. LUBRICANT EYE OINTMENT (AND ALSO NATURAL TEARS DROPS) [Concomitant]
  18. EPINEPHRINE--INTRAVENOUS DRIP [Concomitant]
  19. HYDROMORPHONE--INTRAVENOUS DRIP [Concomitant]
  20. PANTOPRAZOLE [Concomitant]
     Active Substance: PANTOPRAZOLE
  21. ALBUTEROL INHALER [Concomitant]
     Active Substance: ALBUTEROL
  22. ATROPINE. [Concomitant]
     Active Substance: ATROPINE

REACTIONS (2)
  - Therapy cessation [None]
  - Acute kidney injury [None]

NARRATIVE: CASE EVENT DATE: 20200530
